FAERS Safety Report 4537117-7 (Version None)
Quarter: 2004Q4

REPORT INFORMATION
  Report Type: 
  Country: None (occurrence: None)
  Receive Date: 20041223
  Receipt Date: 20041206
  Transmission Date: 20050328
  Serious: Yes (Hospitalization)
  Sender: FDA-Public Use
  Company Number: JP-GLAXOSMITHKLINE-B0359221A

PATIENT
  Age: 43 Year
  Sex: Male

DRUGS (5)
  1. LAMIVUDINE [Suspect]
     Indication: ACQUIRED IMMUNODEFICIENCY SYNDROME
     Dosage: 300MG PER DAY
     Route: 048
     Dates: start: 20010221
  2. ZIDOVUDINE [Suspect]
     Indication: ACQUIRED IMMUNODEFICIENCY SYNDROME
     Dosage: 400MG PER DAY
     Route: 048
     Dates: start: 20020424, end: 20030213
  3. STAVUDINE [Suspect]
     Indication: ACQUIRED IMMUNODEFICIENCY SYNDROME
     Dosage: 60MG PER DAY
     Route: 048
     Dates: start: 20010221, end: 20020423
  4. EFAVIRENZ [Suspect]
     Indication: ACQUIRED IMMUNODEFICIENCY SYNDROME
     Dosage: 600MG PER DAY
     Route: 048
     Dates: start: 20010221
  5. CO-TRIMOXAZOLE [Concomitant]
     Indication: PNEUMOCYSTIS CARINII PNEUMONIA
     Dosage: 1TAB PER DAY
     Route: 048
     Dates: start: 20010210, end: 20020325

REACTIONS (9)
  - ANAEMIA [None]
  - BLISTER [None]
  - DYSPNOEA [None]
  - HERPES ZOSTER [None]
  - HYPERLACTACIDAEMIA [None]
  - HYPOAESTHESIA [None]
  - KAPOSI'S SARCOMA [None]
  - LYMPHADENOPATHY [None]
  - PAIN IN EXTREMITY [None]
